FAERS Safety Report 9319423 (Version 8)
Quarter: 2015Q3

REPORT INFORMATION
  Report Type: Spontaneous
  Country: US (occurrence: US)
  Receive Date: 20130530
  Receipt Date: 20150810
  Transmission Date: 20151125
  Serious: Yes (Death, Hospitalization, Other)
  Sender: FDA-Public Use
  Company Number: US-GLAXOSMITHKLINE-A0978260A

PATIENT
  Age: 55 Year
  Sex: Female

DRUGS (9)
  1. FLOLAN [Suspect]
     Active Substance: EPOPROSTENOL SODIUM
     Dosage: 10 MG/KG/MIN
     Dates: start: 20120509
  2. ASPIRIN. [Concomitant]
     Active Substance: ASPIRIN
     Indication: CONNECTIVE TISSUE DISORDER
  3. FLOLAN [Suspect]
     Active Substance: EPOPROSTENOL SODIUM
     Dosage: UNK
     Dates: start: 20120430
  4. FLOLAN [Suspect]
     Active Substance: EPOPROSTENOL SODIUM
     Dosage: UNK
     Dates: start: 20120430
  5. FLOLAN [Suspect]
     Active Substance: EPOPROSTENOL SODIUM
     Dosage: UNK
     Dates: start: 20120430
  6. FLOLAN [Suspect]
     Active Substance: EPOPROSTENOL SODIUM
     Indication: COR PULMONALE CHRONIC
     Dosage: CONCENTRATION: 15,000 NG/MLVIAL STRENGTH: 1.5 MGDOSE: 10 NG/KG/MIN CONTINUOUSLYCONCENTRATION: 1[...]
     Route: 042
     Dates: start: 20120430
  7. FLOLAN [Suspect]
     Active Substance: EPOPROSTENOL SODIUM
     Dosage: UNK
     Dates: start: 20120430
  8. ADCIRCA [Concomitant]
     Active Substance: TADALAFIL
  9. FLOLAN [Suspect]
     Active Substance: EPOPROSTENOL SODIUM
     Indication: PULMONARY HYPERTENSION
     Dosage: UNK
     Dates: start: 20120430

REACTIONS (25)
  - Headache [Unknown]
  - Flushing [Unknown]
  - Upper limb fracture [Unknown]
  - Thoracic vertebral fracture [Unknown]
  - Mass [Not Recovered/Not Resolved]
  - Neoplasm malignant [Unknown]
  - Death [Fatal]
  - Pneumonia [Unknown]
  - Hypoaesthesia [Unknown]
  - Feeling abnormal [Unknown]
  - Rehabilitation therapy [Unknown]
  - Oxygen saturation decreased [Not Recovered/Not Resolved]
  - Musculoskeletal pain [Unknown]
  - Nausea [Not Recovered/Not Resolved]
  - Influenza [Unknown]
  - Back pain [Unknown]
  - Neck pain [Unknown]
  - Catheter site discharge [Recovered/Resolved]
  - Orthosis user [Unknown]
  - Oral herpes [Unknown]
  - Clavicle fracture [Unknown]
  - Head injury [Unknown]
  - Fall [Unknown]
  - Catheter site erythema [Unknown]
  - Road traffic accident [Unknown]

NARRATIVE: CASE EVENT DATE: 201205
